FAERS Safety Report 4721365-7 (Version None)
Quarter: 2005Q3

REPORT INFORMATION
  Report Type: 
  Country: None (occurrence: None)
  Receive Date: 20050721
  Receipt Date: 20040721
  Transmission Date: 20060218
  Serious: No
  Sender: FDA-Public Use
  Company Number: US-BRISTOL-MYERS SQUIBB COMPANY-12647103

PATIENT
  Age: 85 Year
  Sex: Male

DRUGS (6)
  1. COUMADIN [Suspect]
     Indication: ATRIAL FIBRILLATION
     Route: 048
     Dates: start: 20030101
  2. CELEXA [Interacting]
     Indication: DEPRESSION
     Route: 048
     Dates: start: 20010101
  3. CELEXA [Interacting]
     Indication: ANXIETY
     Route: 048
     Dates: start: 20010101
  4. LANOXIN [Concomitant]
     Dates: start: 20030101
  5. ATENOLOL [Concomitant]
  6. VITAMIN E [Concomitant]

REACTIONS (2)
  - DRUG INTERACTION [None]
  - PROSTATIC SPECIFIC ANTIGEN INCREASED [None]
